FAERS Safety Report 7340154-0 (Version None)
Quarter: 2011Q1

REPORT INFORMATION
  Report Type: 
  Country: None (occurrence: None)
  Receive Date: 20110309
  Receipt Date: 20110218
  Transmission Date: 20110831
  Serious: No
  Sender: FDA-Public Use
  Company Number: US-B.I. PHARMACEUTICALS,INC./RIDGEFIELD-2011-BP-06195BP

PATIENT
  Sex: Male

DRUGS (5)
  1. MULTAQ [Concomitant]
     Indication: ATRIAL FIBRILLATION
  2. CRESTOR [Concomitant]
     Indication: BLOOD CHOLESTEROL INCREASED
     Dates: start: 20070101
  3. GABAPENTIN [Concomitant]
     Indication: FIBROMYALGIA
     Dates: start: 20100101
  4. PRADAXA [Suspect]
     Indication: ATRIAL FIBRILLATION
     Dosage: 300 MG
     Route: 048
     Dates: start: 20110101
  5. ALLOPURINOL [Concomitant]
     Indication: GOUT

REACTIONS (2)
  - MUSCLE SPASMS [None]
  - LOSS OF CONTROL OF LEGS [None]
